FAERS Safety Report 9813018 (Version 1)
Quarter: 2014Q1

REPORT INFORMATION
  Report Type: Spontaneous
  Country: PL (occurrence: PL)
  Receive Date: 20140113
  Receipt Date: 20140113
  Transmission Date: 20141002
  Serious: Yes (Other)
  Sender: FDA-Public Use
  Company Number: PL-ASTELLAS-2014EU000089

PATIENT
  Sex: Male

DRUGS (8)
  1. PROGRAF [Suspect]
     Indication: EXPOSURE DURING PREGNANCY
     Dosage: 2 MG, BID
     Route: 064
  2. PROGRAF [Suspect]
     Indication: EXPOSURE DURING BREAST FEEDING
     Dosage: 3 MG, TID
     Route: 064
  3. PREDNISONE [Suspect]
     Indication: EXPOSURE DURING PREGNANCY
     Dosage: 7.5 MG, UID/QD
     Route: 064
  4. PREDNISONE [Suspect]
     Indication: EXPOSURE DURING BREAST FEEDING
  5. VERAPAMIL [Concomitant]
     Dosage: UNK
     Route: 064
  6. DROTAVERINE [Concomitant]
     Dosage: UNK
     Route: 064
  7. URSODEOXYCHOLIC ACID [Concomitant]
     Dosage: UNK
     Route: 064
  8. SPIRONOLACTONE [Concomitant]
     Dosage: UNK
     Route: 064

REACTIONS (11)
  - Premature baby [Unknown]
  - Respiratory rate increased [Unknown]
  - Intrauterine infection [Unknown]
  - Pneumonia [Unknown]
  - Hyperbilirubinaemia [Unknown]
  - Anaemia [Unknown]
  - Calcium metabolism disorder [Unknown]
  - Phosphorus metabolism disorder [Unknown]
  - Hypertonia [Unknown]
  - Upper respiratory tract infection [Unknown]
  - Developmental delay [Unknown]
